FAERS Safety Report 14448672 (Version 3)
Quarter: 2018Q3

REPORT INFORMATION
  Report Type: Spontaneous
  Country: US (occurrence: US)
  Receive Date: 20180126
  Receipt Date: 20180720
  Transmission Date: 20181010
  Serious: Yes (Hospitalization, Other)
  Sender: FDA-Public Use
  Company Number: US-DSJP-DSU-2017-138776

PATIENT

DRUGS (2)
  1. BENICAR [Suspect]
     Active Substance: OLMESARTAN MEDOXOMIL
     Indication: HYPERTENSION
     Dosage: 20 MG QD
     Route: 048
     Dates: start: 20130207, end: 20171012
  2. BENICAR [Suspect]
     Active Substance: OLMESARTAN MEDOXOMIL
     Dosage: 40 MG QD
     Route: 048
     Dates: start: 20130207, end: 20171012

REACTIONS (6)
  - Renal failure [Unknown]
  - Diverticulitis [Recovered/Resolved]
  - Diverticulum [Unknown]
  - Hepatic enzyme abnormal [Unknown]
  - Sprue-like enteropathy [Recovered/Resolved]
  - Hiatus hernia [Unknown]

NARRATIVE: CASE EVENT DATE: 20151005
